FAERS Safety Report 5875570-7 (Version None)
Quarter: 2008Q3

REPORT INFORMATION
  Report Type: 
  Country: None (occurrence: None)
  Receive Date: 20080909
  Receipt Date: 20080826
  Transmission Date: 20090109
  Serious: Yes (Other)
  Sender: FDA-Public Use
  Company Number: US-ELI_LILLY_AND_COMPANY-US200808005577

PATIENT
  Age: 44 Year
  Sex: Female
  Weight: 66.213 kg

DRUGS (7)
  1. BYETTA [Suspect]
     Indication: DIABETES MELLITUS
     Dosage: 10 UG, 2/D
     Route: 058
     Dates: start: 20060101, end: 20080825
  2. SIMVASTATIN [Concomitant]
     Dosage: 40 MG, UNKNOWN
     Route: 048
     Dates: end: 20080825
  3. ACIPHEX [Concomitant]
     Dosage: 20 MG, UNKNOWN
     Route: 065
  4. ARMOUR THYROID [Concomitant]
     Dosage: UNK, UNKNOWN
     Route: 065
  5. PROGESTERONE [Concomitant]
     Dosage: UNK, UNKNOWN
     Route: 065
  6. ESTROGEN NOS [Concomitant]
     Dosage: UNK, UNKNOWN
     Route: 065
  7. FLONASE [Concomitant]
     Dosage: UNK, UNKNOWN
     Route: 065

REACTIONS (2)
  - PANCREATITIS [None]
  - WEIGHT DECREASED [None]
